FAERS Safety Report 9156561 (Version 1)
Quarter: 2013Q1

REPORT INFORMATION
  Report Type: Spontaneous
  Country: MX (occurrence: None)
  Receive Date: 20130206
  Receipt Date: 20130206
  Transmission Date: 20140127
  Serious: Yes (Other)
  Sender: FDA-Public Use
  Company Number: 7189138

PATIENT
  Age: 60 Year
  Sex: Female
  Weight: 39.5 kg

DRUGS (7)
  1. EUTIROX (LEVOTHYROXINE SODIUM) [Suspect]
     Indication: THYROIDECTOMY
     Dosage: 100, 1 IN 1 D
     Route: 048
     Dates: end: 20130105
  2. EUTIROX (LEVOTHYROXINE SODIUM) [Suspect]
     Indication: HYPOTHYROIDISM
     Dosage: 100, 1 IN 1 D
     Route: 048
     Dates: end: 20130105
  3. LEVOTHYROXINE [Suspect]
     Indication: THYROIDECTOMY
     Dosage: 100, 1 IN 1 D
     Route: 048
     Dates: start: 1986
  4. LEVOTHYROXINE [Suspect]
     Indication: HYPOTHYROIDISM
     Dosage: 100, 1 IN 1 D
     Route: 048
     Dates: start: 1986
  5. LIVIAL (TIBOLONE) [Concomitant]
  6. FOSAMAX (ALENDRONATE SODIUM) [Concomitant]
  7. VACCINE (VACCINES) [Concomitant]

REACTIONS (5)
  - Gastrooesophageal reflux disease [None]
  - Cough [None]
  - Salivary hypersecretion [None]
  - Headache [None]
  - Vomiting [None]
